FAERS Safety Report 18670262 (Version 3)
Quarter: 2021Q1

REPORT INFORMATION
  Report Type: Spontaneous
  Country: US (occurrence: US)
  Receive Date: 20201228
  Receipt Date: 20210113
  Transmission Date: 20210419
  Serious: Yes (Other)
  Sender: FDA-Public Use
  Company Number: US-ABBVIE-20K-163-3702891-00

PATIENT
  Sex: Female

DRUGS (1)
  1. CREON [Suspect]
     Active Substance: PANCRELIPASE AMYLASE\PANCRELIPASE LIPASE\PANCRELIPASE PROTEASE
     Indication: PRODUCT USED FOR UNKNOWN INDICATION
     Route: 048

REACTIONS (12)
  - Cholecystectomy [Unknown]
  - Intentional product misuse [Unknown]
  - Pancreas islet cell transplant [Unknown]
  - Splenectomy [Unknown]
  - Bedridden [Unknown]
  - Therapeutic product effect delayed [Unknown]
  - Pancreatectomy [Unknown]
  - Type 3 diabetes mellitus [Unknown]
  - Endocrine pancreatic disorder [Unknown]
  - Appendicectomy [Unknown]
  - Pain [Unknown]
  - Constipation [Unknown]

NARRATIVE: CASE EVENT DATE: 201811
